FAERS Safety Report 21510506 (Version 2)
Quarter: 2024Q4

REPORT INFORMATION
  Report Type: Report from Study
  Country: US (occurrence: US)
  Receive Date: 20221026
  Receipt Date: 20241022
  Transmission Date: 20250114
  Serious: Yes (Hospitalization, Other)
  Sender: JAZZ
  Company Number: US-JAZZ-2021-US-018171

PATIENT
  Age: 67 Year
  Sex: Female

DRUGS (11)
  1. XYREM [Suspect]
     Active Substance: SODIUM OXYBATE
     Indication: Narcolepsy
     Dosage: 3.75 GRAM, BID
     Route: 048
     Dates: start: 200210, end: 201801
  2. XYREM [Suspect]
     Active Substance: SODIUM OXYBATE
     Indication: Cataplexy
     Dosage: 2.25 GRAM, BID
     Route: 048
     Dates: start: 201802, end: 201803
  3. XYREM [Suspect]
     Active Substance: SODIUM OXYBATE
     Indication: Somnolence
     Dosage: 3.75 GRAM, BID
     Route: 048
     Dates: start: 201803
  4. PROLIA [Concomitant]
     Active Substance: DENOSUMAB
     Dosage: SYRINGE
     Dates: start: 20180618
  5. LISINOPRIL [Concomitant]
     Active Substance: LISINOPRIL
     Dosage: UNK
     Dates: start: 20210112
  6. CALCIUM CITRATE [Concomitant]
     Active Substance: CALCIUM CITRATE
  7. BUPROPION HYDROCHLORIDE [Concomitant]
     Active Substance: BUPROPION HYDROCHLORIDE
     Indication: Product used for unknown indication
  8. VITAMIN D2 [Concomitant]
     Active Substance: ERGOCALCIFEROL
     Dosage: UNK
     Dates: start: 20241001
  9. CENTRUM SILVER ADVANCE [Concomitant]
     Dosage: UNK
     Dates: start: 20240823
  10. PROBIOTIC BLEND [Concomitant]
     Dosage: UNK
     Dates: start: 20240901
  11. URSODIOL [Concomitant]
     Active Substance: URSODIOL
     Dosage: UNK
     Dates: start: 20241001

REACTIONS (7)
  - COVID-19 [Recovered/Resolved]
  - Cystocele [Recovered/Resolved]
  - COVID-19 pneumonia [Recovered/Resolved]
  - Corneal abrasion [Unknown]
  - Dry eye [Unknown]
  - Vitamin D deficiency [Recovered/Resolved]
  - Post-acute COVID-19 syndrome [Recovered/Resolved]

NARRATIVE: CASE EVENT DATE: 20220708
